FAERS Safety Report 6511669-X (Version None)
Quarter: 2009Q4

REPORT INFORMATION
  Report Type: 
  Country: None (occurrence: None)
  Receive Date: 20091222
  Receipt Date: 20090518
  Transmission Date: 20100525
  Serious: No
  Sender: FDA-Public Use
  Company Number: US-ASTRAZENECA-2009UW11742

PATIENT
  Sex: Female

DRUGS (5)
  1. CRESTOR [Suspect]
     Route: 048
  2. CRESTOR [Suspect]
     Route: 048
  3. PREDNISONE [Concomitant]
  4. Z-PAK [Concomitant]
  5. ALBUTEROL [Concomitant]

REACTIONS (3)
  - ALOPECIA [None]
  - CONTUSION [None]
  - MYALGIA [None]
